FAERS Safety Report 5976230-4 (Version None)
Quarter: 2008Q4

REPORT INFORMATION
  Report Type: 
  Country: None (occurrence: None)
  Receive Date: 20081202
  Receipt Date: 20081126
  Transmission Date: 20090506
  Serious: Yes (Other)
  Sender: FDA-Public Use
  Company Number: US-GILEAD-2008-0019165

PATIENT
  Sex: Female
  Weight: 54.48 kg

DRUGS (9)
  1. LETAIRIS [Suspect]
     Indication: PULMONARY HYPERTENSION
     Route: 048
     Dates: start: 20070801
  2. FELODIPINE [Concomitant]
     Route: 048
  3. ASPIRIN [Concomitant]
  4. NEXIUM [Concomitant]
  5. LEVOTHYROXINE SODIUM [Concomitant]
  6. VENTAVIS [Concomitant]
  7. CRESTOR [Concomitant]
  8. TYLENOL (CAPLET) [Concomitant]
  9. LASIX [Concomitant]

REACTIONS (5)
  - ABDOMINAL PAIN UPPER [None]
  - CHEST PAIN [None]
  - EATING DISORDER [None]
  - ERUCTATION [None]
  - FLATULENCE [None]
